FAERS Safety Report 16357501 (Version 1)
Quarter: 2019Q2

REPORT INFORMATION
  Report Type: Spontaneous
  Country: US (occurrence: US)
  Receive Date: 20190418
  Receipt Date: 20190418
  Transmission Date: 20190711
  Serious: Yes (Hospitalization)
  Sender: FDA-Public Use
  Company Number: None

PATIENT
  Age: 61 Year
  Sex: Male

DRUGS (2)
  1. OCTREOTIDE 50 MCG PFS [Suspect]
     Active Substance: OCTREOTIDE
     Indication: GIGANTISM
     Dosage: 50 MCG PFS TID
     Route: 058
     Dates: start: 20190326
  2. OCTREOTIDE 50 MCG PFS [Suspect]
     Active Substance: OCTREOTIDE
     Indication: ACROMEGALY
     Dosage: 50 MCG PFS TID
     Route: 058
     Dates: start: 20190326

REACTIONS (2)
  - Heart rate irregular [None]
  - Blood glucose abnormal [None]

NARRATIVE: CASE EVENT DATE: 2019
